FAERS Safety Report 6520104-7 (Version None)
Quarter: 2009Q4

REPORT INFORMATION
  Report Type: 
  Country: None (occurrence: None)
  Receive Date: 20091229
  Receipt Date: 20091224
  Transmission Date: 20100525
  Serious: Yes (Death)
  Sender: FDA-Public Use
  Company Number: PHHY2009MX58434

PATIENT
  Age: 92 Year
  Sex: Female

DRUGS (1)
  1. DIOVAN HCT [Suspect]
     Dosage: 1 TABLET (80/12.5  MG) PER DAY

REACTIONS (2)
  - GASTROINTESTINAL INFECTION [None]
  - INFARCTION [None]
